FAERS Safety Report 5871535-X (Version None)
Quarter: 2008Q3

REPORT INFORMATION
  Report Type: 
  Country: None (occurrence: None)
  Receive Date: 20080905
  Receipt Date: 20080401
  Transmission Date: 20090109
  Serious: Yes (Hospitalization)
  Sender: FDA-Public Use
  Company Number: A0718662A

PATIENT
  Age: 63 Year
  Sex: Female

DRUGS (4)
  1. REQUIP [Suspect]
     Indication: RESTLESS LEGS SYNDROME
     Dosage: 5MG PER DAY
     Route: 048
     Dates: end: 20080324
  2. WELLBUTRIN [Concomitant]
  3. LIPITOR [Concomitant]
  4. IMDUR [Concomitant]

REACTIONS (3)
  - CHEST PAIN [None]
  - HYPERHIDROSIS [None]
  - PAIN IN EXTREMITY [None]
